FAERS Safety Report 11655910 (Version 1)
Quarter: 2015Q4

REPORT INFORMATION
  Report Type: Spontaneous
  Country: CZ (occurrence: CZ)
  Receive Date: 20151023
  Receipt Date: 20151023
  Transmission Date: 20160304
  Serious: Yes (Death, Hospitalization)
  Sender: FDA-Public Use
  Company Number: CZ-IPCA LABORATORIES LIMITED-IPC201510-000686

PATIENT
  Age: 14 Year
  Sex: Female

DRUGS (2)
  1. METOPROLOL TARTRATE. [Suspect]
     Active Substance: METOPROLOL TARTRATE
  2. PROPAFENONE. [Suspect]
     Active Substance: PROPAFENONE

REACTIONS (10)
  - Acute kidney injury [Unknown]
  - Toxicity to various agents [Fatal]
  - Completed suicide [Fatal]
  - Intentional overdose [Unknown]
  - Brain oedema [Unknown]
  - Seizure [Unknown]
  - Loss of consciousness [Unknown]
  - Electrocardiogram QRS complex prolonged [Unknown]
  - Drug interaction [Unknown]
  - Cardiac arrest [Unknown]
